FAERS Safety Report 11288838 (Version 1)
Quarter: 2015Q3

REPORT INFORMATION
  Report Type: Spontaneous
  Country: CA (occurrence: CA)
  Receive Date: 20150721
  Receipt Date: 20150721
  Transmission Date: 20151125
  Serious: Yes (Other)
  Sender: FDA-Public Use
  Company Number: PHHY2015CA084326

PATIENT
  Age: 59 Year
  Sex: Female

DRUGS (4)
  1. PACLITAXEL. [Suspect]
     Active Substance: PACLITAXEL
     Indication: BREAST CANCER
     Dosage: UNK
     Route: 042
     Dates: start: 20150529
  2. NEUPOGEN [Suspect]
     Active Substance: FILGRASTIM
     Indication: NEUTROPENIA
     Dosage: 80 MG/M2, UNK
     Route: 065
     Dates: start: 20150325
  3. ADRIAMYCIN [Concomitant]
     Active Substance: DOXORUBICIN HYDROCHLORIDE
     Indication: BREAST CANCER
     Route: 065
  4. CYCLOPHOSPHAMIDE. [Concomitant]
     Active Substance: CYCLOPHOSPHAMIDE
     Indication: BREAST CANCER
     Route: 065

REACTIONS (11)
  - Dyspepsia [Recovering/Resolving]
  - Pain in jaw [Recovered/Resolved]
  - Oral herpes [Not Recovered/Not Resolved]
  - Hereditary spastic paraplegia [Unknown]
  - Mobility decreased [Unknown]
  - Pain in extremity [Recovered/Resolved]
  - Burning sensation [Recovered/Resolved]
  - Colitis [Recovered/Resolved]
  - Syphilis [Recovered/Resolved]
  - Blister [Recovered/Resolved]
  - Chest pain [Recovered/Resolved]
